FAERS Safety Report 8345486-5 (Version None)
Quarter: 2012Q2

REPORT INFORMATION
  Report Type: 
  Country: None (occurrence: None)
  Receive Date: 20120508
  Receipt Date: 20120503
  Transmission Date: 20120825
  Serious: Yes (Other)
  Sender: FDA-Public Use
  Company Number: HU-PFIZER INC-2011181000

PATIENT
  Age: 41 Year
  Sex: Female
  Weight: 110 kg

DRUGS (5)
  1. AMILORIDE [Concomitant]
     Indication: BLOOD GLUCOSE
     Dosage: UNK
  2. LETROX [Concomitant]
     Dosage: UNK
     Dates: start: 20000101
  3. LYRICA [Suspect]
     Dosage: 75 MG, 2X/DAY
  4. LYRICA [Suspect]
     Indication: NEURALGIA
     Dosage: 75 MG, 2X/DAY
     Dates: start: 20110601
  5. LYRICA [Suspect]
     Dosage: 150 MG, 2X/DAY

REACTIONS (6)
  - DIARRHOEA [None]
  - HYPERHIDROSIS [None]
  - HYPOAESTHESIA ORAL [None]
  - FEELING ABNORMAL [None]
  - NAUSEA [None]
  - COMMUNICATION DISORDER [None]
